FAERS Safety Report 10180600 (Version 1)
Quarter: 2014Q2

REPORT INFORMATION
  Report Type: Spontaneous
  Country: US (occurrence: US)
  Receive Date: 20140519
  Receipt Date: 20140519
  Transmission Date: 20141212
  Serious: No
  Sender: FDA-Public Use
  Company Number: US-AMGEN INC.-USASP2014023837

PATIENT
  Age: 65 Year
  Sex: Female

DRUGS (3)
  1. PROLIA [Suspect]
     Indication: OSTEOPOROSIS POSTMENOPAUSAL
     Dosage: UNK
     Route: 065
  2. TOPROL [Concomitant]
     Dosage: 25 MG, UNK
     Route: 065
  3. RECLAST [Concomitant]
     Dosage: UNK
     Route: 065
     Dates: start: 201401

REACTIONS (4)
  - Heart rate irregular [Recovered/Resolved]
  - Blood pressure increased [Recovered/Resolved]
  - Injection site pain [Unknown]
  - Feeling abnormal [Unknown]
